FAERS Safety Report 4474557-9 (Version None)
Quarter: 2004Q3

REPORT INFORMATION
  Report Type: 
  Country: None (occurrence: None)
  Receive Date: 20040923
  Receipt Date: 20040707
  Transmission Date: 20050211
  Serious: No
  Sender: FDA-Public Use
  Company Number: USA040771934

PATIENT
  Age: 67 Year
  Sex: Female
  Weight: 55 kg

DRUGS (5)
  1. FORTEO [Suspect]
     Indication: OSTEOPOROSIS
     Dosage: 20 UG/1 DAY
     Dates: start: 20030701
  2. MAGNESIUM [Concomitant]
  3. FOSAMAX [Concomitant]
  4. CALCIUM WITH VITMIN D [Concomitant]
  5. MIACALCIN [Concomitant]

REACTIONS (3)
  - FEELING ABNORMAL [None]
  - MULTIPLE ALLERGIES [None]
  - NASOPHARYNGITIS [None]
